FAERS Safety Report 9837259 (Version 1)
Quarter: 2014Q1

REPORT INFORMATION
  Report Type: Spontaneous
  Country: US (occurrence: US)
  Receive Date: 20140123
  Receipt Date: 20140123
  Transmission Date: 20141002
  Serious: Yes (Other)
  Sender: FDA-Public Use
  Company Number: US-JNJFOC-20140112127

PATIENT
  Sex: Female
  Weight: 72.58 kg

DRUGS (1)
  1. HALDOL [Suspect]
     Indication: PRODUCT USED FOR UNKNOWN INDICATION
     Route: 048
     Dates: start: 1984

REACTIONS (4)
  - Foot deformity [Unknown]
  - Muscle spasms [Unknown]
  - Weight increased [Unknown]
  - Musculoskeletal stiffness [Unknown]
